FAERS Safety Report 12633178 (Version 2)
Quarter: 2016Q3

REPORT INFORMATION
  Report Type: Spontaneous
  Country: US (occurrence: US)
  Receive Date: 20160808
  Receipt Date: 20160808
  Transmission Date: 20161109
  Serious: Yes (Hospitalization)
  Sender: FDA-Public Use
  Company Number: US-BEH-2016058736

PATIENT
  Sex: Male
  Weight: 78 kg

DRUGS (33)
  1. PREDNISONE. [Concomitant]
     Active Substance: PREDNISONE
  2. EPIPEN [Concomitant]
     Active Substance: EPINEPHRINE
  3. ACETAMINOPHEN. [Concomitant]
     Active Substance: ACETAMINOPHEN
  4. CITRACAL + D [Concomitant]
     Active Substance: CALCIUM CITRATE\VITAMIN D
  5. FERROUS SULFATE. [Concomitant]
     Active Substance: FERROUS SULFATE
  6. HYDROCODON-ACETAMINOPHEN [Concomitant]
     Active Substance: ACETAMINOPHEN\HYDROCODONE
  7. METOPROLOL. [Concomitant]
     Active Substance: METOPROLOL
  8. OMEPRAZOLE. [Concomitant]
     Active Substance: OMEPRAZOLE
  9. HIZENTRA [Suspect]
     Active Substance: HUMAN IMMUNOGLOBULIN G
     Indication: IMMUNODEFICIENCY COMMON VARIABLE
     Dosage: 4 GM 20 ML VIALS
     Route: 058
  10. BENTYL [Concomitant]
     Active Substance: DICYCLOMINE HYDROCHLORIDE
  11. LIDOCAINE. [Concomitant]
     Active Substance: LIDOCAINE
  12. VITAMIN D3 [Concomitant]
     Active Substance: CHOLECALCIFEROL
  13. AUGMENTIN [Concomitant]
     Active Substance: AMOXICILLIN\CLAVULANATE POTASSIUM
  14. AVODART [Concomitant]
     Active Substance: DUTASTERIDE
  15. PRESERVISION AREDS [Concomitant]
     Active Substance: MINERALS\VITAMINS
  16. LIDOCAINE/PRILOCAINE [Concomitant]
     Active Substance: LIDOCAINE\PRILOCAINE
  17. COENZYME Q10 [Concomitant]
     Active Substance: UBIDECARENONE
  18. MAALOX ANTACID [Concomitant]
     Active Substance: ALUMINUM HYDROXIDE\DIMETHICONE\MAGNESIUM HYDROXIDE
  19. HYDROMET [Concomitant]
     Active Substance: HOMATROPINE METHYLBROMIDE\HYDROCODONE BITARTRATE
  20. BIOTIN [Concomitant]
     Active Substance: BIOTIN
  21. LIPITOR [Concomitant]
     Active Substance: ATORVASTATIN CALCIUM
  22. PROTONIX [Concomitant]
     Active Substance: PANTOPRAZOLE SODIUM
  23. ZANTAC [Concomitant]
     Active Substance: RANITIDINE HYDROCHLORIDE
  24. LATANOPROST. [Concomitant]
     Active Substance: LATANOPROST
  25. GABAPENTIN. [Concomitant]
     Active Substance: GABAPENTIN
  26. DIPHENHYDRAMINE. [Concomitant]
     Active Substance: DIPHENHYDRAMINE
  27. MAGNESIUM [Concomitant]
     Active Substance: MAGNESIUM
  28. MIRALAX [Concomitant]
     Active Substance: POLYETHYLENE GLYCOL 3350
  29. MUPIROCIN. [Concomitant]
     Active Substance: MUPIROCIN
  30. TURMERIC [Concomitant]
     Active Substance: TURMERIC
  31. TRIAMTERENE-HCTZ [Concomitant]
     Active Substance: HYDROCHLOROTHIAZIDE\TRIAMTERENE
  32. LYRICA [Concomitant]
     Active Substance: PREGABALIN
  33. DUREZOL [Concomitant]
     Active Substance: DIFLUPREDNATE

REACTIONS (1)
  - Blood pressure increased [Unknown]
